FAERS Safety Report 20863348 (Version 1)
Quarter: 2022Q2

REPORT INFORMATION
  Report Type: Spontaneous
  Country: US (occurrence: US)
  Receive Date: 20220523
  Receipt Date: 20220523
  Transmission Date: 20220721
  Serious: No
  Sender: FDA-Public Use
  Company Number: US-PFIZER INC-202200468260

PATIENT
  Age: 85 Year

DRUGS (5)
  1. LEVOTHYROXINE SODIUM [Suspect]
     Active Substance: LEVOTHYROXINE SODIUM
     Indication: Thyroid disorder
     Dosage: 0.125 MG
  2. HYDROCHLOROTHIAZIDE [Suspect]
     Active Substance: HYDROCHLOROTHIAZIDE
     Indication: Bladder disorder
     Dosage: 12.5 MG
  3. VITAMIN D3 [Suspect]
     Active Substance: CHOLECALCIFEROL
     Dosage: UNK
  4. FISH OIL [Suspect]
     Active Substance: FISH OIL
     Dosage: UNK
  5. LEVACECARNINE HYDROCHLORIDE [Suspect]
     Active Substance: LEVACECARNINE HYDROCHLORIDE
     Dosage: 502 MG, 2X/DAY

REACTIONS (2)
  - Drug ineffective [Unknown]
  - Pain in extremity [Recovering/Resolving]
